FAERS Safety Report 7418917-2 (Version None)
Quarter: 2011Q2

REPORT INFORMATION
  Report Type: 
  Country: None (occurrence: None)
  Receive Date: 20110415
  Receipt Date: 20110406
  Transmission Date: 20111010
  Serious: Yes (Hospitalization)
  Sender: FDA-Public Use
  Company Number: BR-ASTRAZENECA-2011SE19746

PATIENT
  Age: 90 Year
  Sex: Female
  Weight: 80 kg

DRUGS (3)
  1. ATACAND HCT [Suspect]
     Indication: HYPERTENSION
     Dosage: 16/12.5MG DAILY
     Route: 048
     Dates: start: 20090101
  2. ATACAND [Suspect]
     Indication: HYPERTENSION
     Dosage: DAILY
     Route: 048
  3. ATACAND [Suspect]
     Dosage: DAILY
     Route: 048

REACTIONS (5)
  - LOWER RESPIRATORY TRACT INFECTION [None]
  - BLOOD PRESSURE INADEQUATELY CONTROLLED [None]
  - DRUG INEFFECTIVE [None]
  - CEREBROVASCULAR ACCIDENT [None]
  - BLOOD PRESSURE ABNORMAL [None]
